FAERS Safety Report 9934314 (Version 2)
Quarter: 2014Q1

REPORT INFORMATION
  Report Type: Report from Study
  Country: US (occurrence: US)
  Receive Date: 20140228
  Receipt Date: 20140228
  Transmission Date: 20141002
  Serious: Yes (Death)
  Sender: FDA-Public Use
  Company Number: US-ASTRAZENECA-2013SE72151

PATIENT
  Age: 40 Year
  Sex: Female
  Weight: 61.2 kg

DRUGS (9)
  1. SEROQUEL [Suspect]
     Indication: BIPOLAR DISORDER
     Dosage: UNKNOWN DOSE AT NIGHT
     Route: 048
     Dates: start: 2008
  2. SEROQUEL [Suspect]
     Indication: BIPOLAR DISORDER
     Dosage: GENERIC, UNKNOWN DOSE AT NIGHT
     Route: 048
  3. SEROQUEL [Suspect]
     Indication: BIPOLAR DISORDER
     Dosage: 400 OR 500 MG AT BEDTIME
     Route: 048
  4. SEROQUEL [Suspect]
     Indication: BIPOLAR DISORDER
     Route: 048
     Dates: start: 2007, end: 201312
  5. SEROQUEL [Suspect]
     Indication: BIPOLAR DISORDER
     Dosage: GENERIC
     Route: 048
  6. TEGRITAL [Concomitant]
     Indication: NEUROPATHY PERIPHERAL
  7. OXYCODONE [Concomitant]
     Indication: PAIN
     Route: 048
     Dates: start: 2010
  8. ATIVAN [Concomitant]
     Indication: INSOMNIA
     Dosage: HS
     Route: 048
     Dates: start: 2010
  9. OHER MEDICATIONS [Concomitant]

REACTIONS (6)
  - Death [Fatal]
  - Feeling abnormal [Unknown]
  - Derealisation [Unknown]
  - Neuropathy peripheral [Unknown]
  - Malaise [Unknown]
  - Nightmare [Unknown]
